FAERS Safety Report 7080787-2 (Version None)
Quarter: 2010Q4

REPORT INFORMATION
  Report Type: 
  Country: None (occurrence: None)
  Receive Date: 20101103
  Receipt Date: 20101021
  Transmission Date: 20110411
  Serious: Yes (Other)
  Sender: FDA-Public Use
  Company Number: JP-ASTRAZENECA-2010SE51768

PATIENT
  Age: 63 Year
  Sex: Male

DRUGS (4)
  1. MEROPEN [Suspect]
     Indication: INFECTION
     Route: 042
  2. FIRSTCIN [Suspect]
     Indication: INFECTION
     Route: 042
  3. VANCOMYCIN [Suspect]
     Indication: INFECTION
  4. WARFARIN [Concomitant]
     Indication: ATRIAL FIBRILLATION

REACTIONS (3)
  - ACTIVATED PARTIAL THROMBOPLASTIN TIME PROLONGED [None]
  - COAGULOPATHY [None]
  - SUBDURAL HAEMATOMA [None]
